FAERS Safety Report 18791557 (Version 1)
Quarter: 2021Q1

REPORT INFORMATION
  Report Type: Spontaneous
  Country: US (occurrence: US)
  Receive Date: 20210126
  Receipt Date: 20210126
  Transmission Date: 20210419
  Serious: No
  Sender: FDA-Public Use
  Company Number: US-PERRIGO-20US001767

PATIENT
  Age: 9 Year
  Sex: Female
  Weight: 40.82 kg

DRUGS (1)
  1. IBUPROFEN. [Suspect]
     Active Substance: IBUPROFEN
     Indication: PYREXIA
     Dosage: 300 ML, TWICE IN 6 TO 8 HOURS
     Route: 048
     Dates: start: 20200124, end: 20200124

REACTIONS (1)
  - Exposure to unspecified agent [Recovered/Resolved]

NARRATIVE: CASE EVENT DATE: 20200124
